FAERS Safety Report 7290780-2 (Version None)
Quarter: 2011Q1

REPORT INFORMATION
  Report Type: 
  Country: None (occurrence: None)
  Receive Date: 20110214
  Receipt Date: 20110203
  Transmission Date: 20110831
  Serious: Yes (Hospitalization)
  Sender: FDA-Public Use
  Company Number: US-ALEXION-A201100028

PATIENT

DRUGS (3)
  1. SOLIRIS [Suspect]
     Indication: PAROXYSMAL NOCTURNAL HAEMOGLOBINURIA
     Dosage: UNK
     Route: 042
     Dates: start: 20101019
  2. EXJADE [Concomitant]
     Indication: IRON OVERLOAD
     Dosage: UNK
     Route: 048
  3. SOLIRIS [Suspect]
     Dosage: 900 MG, Q2W
     Route: 042

REACTIONS (5)
  - HAEMOGLOBIN DECREASED [None]
  - PYREXIA [None]
  - BLOOD IRON INCREASED [None]
  - INFLUENZA [None]
  - ARTHRALGIA [None]
